FAERS Safety Report 13063622 (Version 2)
Quarter: 2017Q1

REPORT INFORMATION
  Report Type: Spontaneous
  Country: US (occurrence: US)
  Receive Date: 20161227
  Receipt Date: 20170110
  Transmission Date: 20170428
  Serious: Yes (Hospitalization, Other)
  Sender: FDA-Public Use
  Company Number: US-AUROBINDO-AUR-APL-2016-15635

PATIENT
  Age: 55 Year
  Sex: Female

DRUGS (1)
  1. TRIMETHOPRIM+SULFAMETHOXAZOLE [Suspect]
     Active Substance: SULFAMETHOXAZOLE\TRIMETHOPRIM
     Indication: CELLULITIS
     Dosage: UNK
     Route: 065

REACTIONS (11)
  - Rash erythematous [Recovered/Resolved]
  - Atrial fibrillation [Recovering/Resolving]
  - Multi-organ disorder [Unknown]
  - Rash [Recovered/Resolved]
  - Hypotension [Unknown]
  - Leukocytosis [Unknown]
  - Pyrexia [Recovered/Resolved]
  - Nodule [Recovered/Resolved]
  - Distributive shock [Recovering/Resolving]
  - Acute febrile neutrophilic dermatosis [Recovered/Resolved]
  - Neutrophilia [Recovering/Resolving]
